FAERS Safety Report 4337672-6 (Version None)
Quarter: 2004Q2

REPORT INFORMATION
  Report Type: 
  Country: None (occurrence: None)
  Receive Date: 20040407
  Receipt Date: 20040324
  Transmission Date: 20050107
  Serious: Yes (Hospitalization)
  Sender: FDA-Public Use
  Company Number: FI-JNJFOC-20040305498

PATIENT
  Age: 43 Year
  Sex: Female

DRUGS (2)
  1. REMICADE [Suspect]
     Indication: CROHN'S DISEASE
     Dosage: 5 MG/KG, INTRAVENOUS
     Route: 042
     Dates: start: 20010718, end: 20030820
  2. PENTASA [Concomitant]

REACTIONS (3)
  - ADENOCARCINOMA PANCREAS [None]
  - DUODENAL NEOPLASM [None]
  - PANCREATITIS [None]
